FAERS Safety Report 14874091 (Version 4)
Quarter: 2018Q3

REPORT INFORMATION
  Report Type: Spontaneous
  Country: US (occurrence: US)
  Receive Date: 20180510
  Receipt Date: 20180817
  Transmission Date: 20181010
  Serious: No
  Sender: FDA-Public Use
  Company Number: US-TEVA-2018-US-890028

PATIENT
  Age: 65 Year
  Sex: Male

DRUGS (4)
  1. XTANDI [Suspect]
     Active Substance: ENZALUTAMIDE
     Indication: PRODUCT USED FOR UNKNOWN INDICATION
     Dosage: 160 MILLIGRAM DAILY;
     Route: 065
     Dates: start: 20180314, end: 20180420
  2. LEUPROLIDE [Concomitant]
     Active Substance: LEUPROLIDE
  3. XTANDI [Suspect]
     Active Substance: ENZALUTAMIDE
     Dosage: 80 MILLIGRAM DAILY;
     Route: 065
     Dates: start: 20180314, end: 20180420
  4. LOSARTAN. [Suspect]
     Active Substance: LOSARTAN
     Indication: PRODUCT USED FOR UNKNOWN INDICATION
     Route: 065

REACTIONS (10)
  - Feeling jittery [Unknown]
  - Insomnia [Unknown]
  - Fatigue [Unknown]
  - Gait disturbance [Unknown]
  - Balance disorder [Unknown]
  - Feeding disorder [Unknown]
  - Cough [Unknown]
  - Hot flush [Unknown]
  - Nausea [Unknown]
  - Headache [Unknown]

NARRATIVE: CASE EVENT DATE: 20180418
